FAERS Safety Report 23391095 (Version 2)
Quarter: 2024Q1

REPORT INFORMATION
  Report Type: Spontaneous
  Country: US (occurrence: US)
  Receive Date: 20240111
  Receipt Date: 20240313
  Transmission Date: 20240410
  Serious: No
  Sender: FDA-Public Use
  Company Number: US-GSK-US2024003905

PATIENT
  Sex: Female

DRUGS (1)
  1. NUCALA [Suspect]
     Active Substance: MEPOLIZUMAB
     Indication: Product used for unknown indication
     Dosage: 100 MG CYC
     Route: 058
     Dates: start: 2017

REACTIONS (4)
  - Sinusitis [Unknown]
  - Joint dislocation [Unknown]
  - Arthralgia [Unknown]
  - Product dose omission issue [Unknown]
